FAERS Safety Report 9094138 (Version 2)
Quarter: 2013Q1

REPORT INFORMATION
  Report Type: Spontaneous
  Country: US (occurrence: None)
  Receive Date: 20130122
  Receipt Date: 20130128
  Transmission Date: 20140127
  Serious: Yes (Other)
  Sender: FDA-Public Use
  Company Number: JPI-P-027753

PATIENT
  Age: 16 Year
  Sex: Male
  Weight: 47.63 kg

DRUGS (6)
  1. XYREM  (500 MILLIGRAM/MILLILITERS, SOLUTION) (SODIUM OXYBATE) [Suspect]
     Indication: CATAPLEXY
     Dosage: 4.5 GM (2.25 GM, 2 IN 1 D), ORAL
     Dates: start: 20121213, end: 20121215
  2. ARMODAFINIL [Concomitant]
  3. MELATONIN [Concomitant]
  4. PRAMIPEXOLE DIHYDROCHLORIDE [Concomitant]
  5. MULTIVITAMINS [Concomitant]
  6. VITAMIN D [Concomitant]

REACTIONS (7)
  - Fatigue [None]
  - Insomnia [None]
  - Circadian rhythm sleep disorder [None]
  - Somnolence [None]
  - Fall [None]
  - Loss of consciousness [None]
  - Convulsion [None]
